FAERS Safety Report 7599401-2 (Version None)
Quarter: 2011Q3

REPORT INFORMATION
  Report Type: 
  Country: None (occurrence: None)
  Receive Date: 20110711
  Receipt Date: 20110622
  Transmission Date: 20111222
  Serious: Yes (Death)
  Sender: FDA-Public Use
  Company Number: ES-BAYER-2011-052582

PATIENT
  Age: 61 Year
  Sex: Female

DRUGS (5)
  1. PRASUGREL [Interacting]
     Indication: CORONARY ANGIOPLASTY
     Route: 048
     Dates: start: 20110602, end: 20110604
  2. SIMVASTATIN [Concomitant]
     Indication: HYPERCHOLESTEROLAEMIA
     Route: 048
     Dates: start: 20110121, end: 20110604
  3. ASPIRIN [Suspect]
     Indication: CORONARY ARTERY DISEASE
     Route: 048
     Dates: start: 20110415, end: 20110604
  4. NEBIVOLOL HCL [Concomitant]
     Route: 048
     Dates: start: 20110415, end: 20110604
  5. NITROGLICERINA [Concomitant]
     Indication: CORONARY ARTERY DISEASE
     Route: 062
     Dates: start: 20110511, end: 20110604

REACTIONS (6)
  - COMA [None]
  - CEREBELLAR HAEMORRHAGE [None]
  - HEADACHE [None]
  - NAUSEA [None]
  - VOMITING [None]
  - MYOCARDIAL INFARCTION [None]
